FAERS Safety Report 11106924 (Version 1)
Quarter: 2015Q2

REPORT INFORMATION
  Report Type: Spontaneous
  Country: US (occurrence: US)
  Receive Date: 20150512
  Receipt Date: 20150512
  Transmission Date: 20150821
  Serious: Yes (Other)
  Sender: FDA-Public Use
  Company Number: US-DYAX CORP.-2015DX000211

PATIENT
  Age: 21 Year
  Sex: Male
  Weight: 70.37 kg

DRUGS (2)
  1. KALBITOR [Suspect]
     Active Substance: ECALLANTIDE
     Indication: HEREDITARY ANGIOEDEMA
     Route: 058
     Dates: start: 2013, end: 2013
  2. KALBITOR [Suspect]
     Active Substance: ECALLANTIDE
     Route: 058
     Dates: start: 2010

REACTIONS (2)
  - Abdominal pain [Recovered/Resolved]
  - Appendicitis [Recovered/Resolved]

NARRATIVE: CASE EVENT DATE: 20150427
